FAERS Safety Report 24117118 (Version 1)
Quarter: 2024Q3

REPORT INFORMATION
  Report Type: Spontaneous
  Country: IN (occurrence: IN)
  Receive Date: 20240722
  Receipt Date: 20240722
  Transmission Date: 20241017
  Serious: Yes (Other)
  Sender: IPCA
  Company Number: IN-IPCA LABORATORIES LIMITED-IPC-2024-IN-001796

PATIENT

DRUGS (2)
  1. TRAMADOL [Suspect]
     Active Substance: TRAMADOL\TRAMADOL HYDROCHLORIDE
     Indication: Appendicectomy
     Dosage: 300 MILLIGRAM, QD
     Route: 030
  2. TRAMADOL [Suspect]
     Active Substance: TRAMADOL\TRAMADOL HYDROCHLORIDE
     Indication: Abdominal pain
     Dosage: 400 MILLIGRAM, QD
     Route: 030

REACTIONS (5)
  - Suicide attempt [Unknown]
  - Drug dependence [Unknown]
  - Drug abuse [Unknown]
  - Galactorrhoea [Unknown]
  - Drug tolerance [Unknown]
